FAERS Safety Report 23275606 (Version 6)
Quarter: 2025Q1

REPORT INFORMATION
  Report Type: Spontaneous
  Country: CA (occurrence: CA)
  Receive Date: 20231208
  Receipt Date: 20250225
  Transmission Date: 20250409
  Serious: Yes (Hospitalization, Other)
  Sender: CHEPLAPHARM
  Company Number: None

PATIENT
  Age: 76 Year
  Sex: Male
  Weight: 105 kg

DRUGS (62)
  1. OLANZAPINE [Suspect]
     Active Substance: OLANZAPINE
     Indication: Social (pragmatic) communication disorder
     Dates: start: 2010
  2. OLANZAPINE [Suspect]
     Active Substance: OLANZAPINE
     Indication: Injury
     Dates: start: 2010
  3. OLANZAPINE [Suspect]
     Active Substance: OLANZAPINE
     Indication: Agitation
     Dates: start: 2010
  4. OLANZAPINE [Suspect]
     Active Substance: OLANZAPINE
     Indication: Post-traumatic stress disorder
     Dates: start: 2010
  5. OLANZAPINE [Suspect]
     Active Substance: OLANZAPINE
     Indication: Social (pragmatic) communication disorder
     Dosage: DAILY DOSE: 2.5 MILLIGRAM
     Route: 048
     Dates: start: 202106, end: 202106
  6. OLANZAPINE [Suspect]
     Active Substance: OLANZAPINE
     Indication: Injury
     Dosage: DAILY DOSE: 2.5 MILLIGRAM
     Route: 048
     Dates: start: 202106, end: 202106
  7. OLANZAPINE [Suspect]
     Active Substance: OLANZAPINE
     Indication: Agitation
     Dosage: DAILY DOSE: 2.5 MILLIGRAM
     Route: 048
     Dates: start: 202106, end: 202106
  8. OLANZAPINE [Suspect]
     Active Substance: OLANZAPINE
     Indication: Post-traumatic stress disorder
     Dosage: DAILY DOSE: 2.5 MILLIGRAM
     Route: 048
     Dates: start: 202106, end: 202106
  9. QUETIAPINE [Suspect]
     Active Substance: QUETIAPINE
     Indication: Dementia with Lewy bodies
     Dosage: DAILY DOSE: 100 MILLIGRAM
     Route: 048
     Dates: start: 202106, end: 202107
  10. QUETIAPINE [Suspect]
     Active Substance: QUETIAPINE
     Indication: Accommodation disorder
     Dosage: DAILY DOSE: 100 MILLIGRAM
     Route: 048
     Dates: start: 202106, end: 202107
  11. QUETIAPINE [Suspect]
     Active Substance: QUETIAPINE
     Indication: Hallucination, visual
     Dosage: DAILY DOSE: 100 MILLIGRAM
     Route: 048
     Dates: start: 202106, end: 202107
  12. QUETIAPINE [Suspect]
     Active Substance: QUETIAPINE
     Indication: Dementia with Lewy bodies
     Dates: start: 202106, end: 202107
  13. QUETIAPINE [Suspect]
     Active Substance: QUETIAPINE
     Indication: Accommodation disorder
     Dates: start: 202106, end: 202107
  14. QUETIAPINE [Suspect]
     Active Substance: QUETIAPINE
     Indication: Hallucination, visual
     Dates: start: 202106, end: 202107
  15. QUETIAPINE [Suspect]
     Active Substance: QUETIAPINE
     Indication: Dementia with Lewy bodies
     Dosage: SLOW RELEASE TABLET?DAILY DOSE: 12.5 MILLIGRAM
     Dates: start: 202106
  16. QUETIAPINE [Suspect]
     Active Substance: QUETIAPINE
     Indication: Accommodation disorder
     Dosage: SLOW RELEASE TABLET?DAILY DOSE: 12.5 MILLIGRAM
     Dates: start: 202106
  17. QUETIAPINE [Suspect]
     Active Substance: QUETIAPINE
     Indication: Hallucination, visual
     Dosage: SLOW RELEASE TABLET?DAILY DOSE: 12.5 MILLIGRAM
     Dates: start: 202106
  18. QUETIAPINE [Suspect]
     Active Substance: QUETIAPINE
     Indication: Dementia with Lewy bodies
     Dosage: THREE TIMES DAILY?DAILY DOSE: 37.5 MILLIGRAM
     Dates: start: 202106
  19. QUETIAPINE [Suspect]
     Active Substance: QUETIAPINE
     Indication: Accommodation disorder
     Dosage: THREE TIMES DAILY?DAILY DOSE: 37.5 MILLIGRAM
     Dates: start: 202106
  20. QUETIAPINE [Suspect]
     Active Substance: QUETIAPINE
     Indication: Hallucination, visual
     Dosage: THREE TIMES DAILY?DAILY DOSE: 37.5 MILLIGRAM
     Dates: start: 202106
  21. QUETIAPINE [Suspect]
     Active Substance: QUETIAPINE
     Indication: Dementia with Lewy bodies
     Dosage: SLOW RELEASE TABLET?DAILY DOSE: 50 MILLIGRAM
  22. QUETIAPINE [Suspect]
     Active Substance: QUETIAPINE
     Indication: Accommodation disorder
     Dosage: SLOW RELEASE TABLET?DAILY DOSE: 50 MILLIGRAM
  23. QUETIAPINE [Suspect]
     Active Substance: QUETIAPINE
     Indication: Hallucination, visual
     Dosage: SLOW RELEASE TABLET?DAILY DOSE: 50 MILLIGRAM
  24. QUETIAPINE [Suspect]
     Active Substance: QUETIAPINE
     Indication: Dementia with Lewy bodies
     Dosage: 100 Q8H, SLOW RELEASE TABLET?DAILY DOSE: 300 MILLIGRAM
  25. QUETIAPINE [Suspect]
     Active Substance: QUETIAPINE
     Indication: Accommodation disorder
     Dosage: 100 Q8H, SLOW RELEASE TABLET?DAILY DOSE: 300 MILLIGRAM
  26. QUETIAPINE [Suspect]
     Active Substance: QUETIAPINE
     Indication: Hallucination, visual
     Dosage: 100 Q8H, SLOW RELEASE TABLET?DAILY DOSE: 300 MILLIGRAM
  27. QUETIAPINE [Suspect]
     Active Substance: QUETIAPINE
     Indication: Dementia with Lewy bodies
     Dosage: 12.5 MG EVERY 3 DAY, SLOW RELEASE TABLET?DAILY DOSE: 300 MILLIGRAM
  28. QUETIAPINE [Suspect]
     Active Substance: QUETIAPINE
     Indication: Accommodation disorder
     Dosage: 12.5 MG EVERY 3 DAY, SLOW RELEASE TABLET?DAILY DOSE: 300 MILLIGRAM
  29. QUETIAPINE [Suspect]
     Active Substance: QUETIAPINE
     Indication: Hallucination, visual
     Dosage: 12.5 MG EVERY 3 DAY, SLOW RELEASE TABLET?DAILY DOSE: 300 MILLIGRAM
  30. QUETIAPINE [Suspect]
     Active Substance: QUETIAPINE
     Indication: Dementia with Lewy bodies
     Dosage: 25 MG EVERY 5 DAY, SLOW RELEASE TABLET
  31. QUETIAPINE [Suspect]
     Active Substance: QUETIAPINE
     Indication: Accommodation disorder
     Dosage: 25 MG EVERY 5 DAY, SLOW RELEASE TABLET
  32. QUETIAPINE [Suspect]
     Active Substance: QUETIAPINE
     Indication: Hallucination, visual
     Dosage: 25 MG EVERY 5 DAY, SLOW RELEASE TABLET
  33. CLONAZEPAM [Suspect]
     Active Substance: CLONAZEPAM
     Indication: Dementia with Lewy bodies
     Dosage: AT BEDTIME?DAILY DOSE: 0.5 MILLIGRAM
  34. CLONAZEPAM [Suspect]
     Active Substance: CLONAZEPAM
     Indication: Product used for unknown indication
     Dosage: AT BEDTIME?DAILY DOSE: 0.5 MILLIGRAM
  35. CANDESARTAN [Suspect]
     Active Substance: CANDESARTAN
  36. CANDESARTAN [Suspect]
     Active Substance: CANDESARTAN
  37. RISPERIDONE [Suspect]
     Active Substance: RISPERIDONE
     Indication: Injury
     Route: 048
     Dates: start: 202106, end: 202106
  38. RISPERIDONE [Suspect]
     Active Substance: RISPERIDONE
     Indication: Post-traumatic stress disorder
     Route: 048
     Dates: start: 202106, end: 202106
  39. RISPERIDONE [Suspect]
     Active Substance: RISPERIDONE
     Indication: Injury
  40. RISPERIDONE [Suspect]
     Active Substance: RISPERIDONE
     Indication: Post-traumatic stress disorder
  41. RISPERIDONE [Suspect]
     Active Substance: RISPERIDONE
     Indication: Injury
  42. RISPERIDONE [Suspect]
     Active Substance: RISPERIDONE
     Indication: Post-traumatic stress disorder
  43. RIVASTIGMINE [Suspect]
     Active Substance: RIVASTIGMINE
     Indication: Product used for unknown indication
     Dates: start: 202106
  44. RIVASTIGMINE [Suspect]
     Active Substance: RIVASTIGMINE
     Indication: Product used for unknown indication
     Route: 062
  45. RIVASTIGMINE [Suspect]
     Active Substance: RIVASTIGMINE
     Indication: Product used for unknown indication
  46. RIVASTIGMINE [Suspect]
     Active Substance: RIVASTIGMINE
     Indication: Product used for unknown indication
     Dosage: DAILY DOSE: 1.5 MILLIGRAM
  47. RIVASTIGMINE [Suspect]
     Active Substance: RIVASTIGMINE
     Indication: Product used for unknown indication
  48. CITALOPRAM [Suspect]
     Active Substance: CITALOPRAM
     Indication: Product used for unknown indication
     Dosage: 20 MG?DAILY DOSE: 20 MILLIGRAM
  49. TRAZODONE [Suspect]
     Active Substance: TRAZODONE HYDROCHLORIDE
     Indication: Product used for unknown indication
     Dosage: TRAZODONE TITRATION?DAILY DOSE: 100 MILLIGRAM
     Dates: start: 202106
  50. TRAZODONE [Suspect]
     Active Substance: TRAZODONE HYDROCHLORIDE
     Indication: Product used for unknown indication
     Dosage: TRAZODONE TITRATION?DAILY DOSE: 50 MILLIGRAM
     Route: 048
     Dates: start: 202106
  51. TRAZODONE [Suspect]
     Active Substance: TRAZODONE HYDROCHLORIDE
     Indication: Product used for unknown indication
     Dosage: TRAZODONE TITRATION?DAILY DOSE: 25 MILLIGRAM
     Dates: start: 202106
  52. TRAZODONE [Suspect]
     Active Substance: TRAZODONE HYDROCHLORIDE
     Indication: Product used for unknown indication
     Dates: start: 202107
  53. LORAZEPAM [Suspect]
     Active Substance: LORAZEPAM
     Indication: Dementia with Lewy bodies
  54. LORAZEPAM [Suspect]
     Active Substance: LORAZEPAM
     Indication: Product used for unknown indication
  55. LOXAPINE [Suspect]
     Active Substance: LOXAPINE
     Indication: Dementia with Lewy bodies
  56. LOXAPINE [Suspect]
     Active Substance: LOXAPINE
     Indication: Product used for unknown indication
  57. LOXAPINE [Suspect]
     Active Substance: LOXAPINE
     Indication: Dementia with Lewy bodies
  58. LOXAPINE [Suspect]
     Active Substance: LOXAPINE
     Indication: Product used for unknown indication
  59. CLOZAPINE [Suspect]
     Active Substance: CLOZAPINE
     Indication: Neuropsychological symptoms
     Dosage: DAILY DOSE: 50 MILLIGRAM
  60. CLOZAPINE [Suspect]
     Active Substance: CLOZAPINE
     Indication: Dementia with Lewy bodies
     Dosage: DAILY DOSE: 50 MILLIGRAM
  61. CLOZAPINE [Suspect]
     Active Substance: CLOZAPINE
     Indication: Neuropsychological symptoms
     Dosage: DAILY DOSE: 6.25 MILLIGRAM
  62. CLOZAPINE [Suspect]
     Active Substance: CLOZAPINE
     Indication: Dementia with Lewy bodies
     Dosage: DAILY DOSE: 6.25 MILLIGRAM

REACTIONS (5)
  - Parkinsonism [Recovered/Resolved]
  - Sedation [Recovering/Resolving]
  - Fall [Unknown]
  - Orthostatic hypotension [Unknown]
  - Off label use [Recovered/Resolved]

NARRATIVE: CASE EVENT DATE: 20210601
